FAERS Safety Report 18966231 (Version 1)
Quarter: 2021Q1

REPORT INFORMATION
  Report Type: Spontaneous
  Country: US (occurrence: US)
  Receive Date: 20210303
  Receipt Date: 20210303
  Transmission Date: 20210420
  Serious: No
  Sender: FDA-Public Use
  Company Number: US-MIKART, LLC-2107541

PATIENT
  Sex: Male
  Weight: 90.91 kg

DRUGS (17)
  1. TIZANIDINE. [Concomitant]
     Active Substance: TIZANIDINE
  2. PERCOCET [Concomitant]
     Active Substance: ACETAMINOPHEN\OXYCODONE HYDROCHLORIDE
  3. DULOXETINE. [Concomitant]
     Active Substance: DULOXETINE
  4. CHLOROPENTANE [Concomitant]
  5. GABAPENTIN. [Concomitant]
     Active Substance: GABAPENTIN
  6. CORTISONE INJECTION [Concomitant]
     Active Substance: HYDROCORTISONE
  7. OXYCONTIN [Concomitant]
     Active Substance: OXYCODONE HYDROCHLORIDE
  8. EPIDURAL STEROID SHOT [Concomitant]
  9. HYDROCODONE BITARTRATE AND ACETAMINOPHEN [Suspect]
     Active Substance: ACETAMINOPHEN\HYDROCODONE BITARTRATE
     Indication: PAIN
     Route: 048
     Dates: start: 2005
  10. MELOXICAM. [Concomitant]
     Active Substance: MELOXICAM
  11. TINACTIN [Concomitant]
     Active Substance: TOLNAFTATE
  12. HYDROCODONE BITARTRATE AND PARACETAMOL [Concomitant]
  13. PRAZOSIN. [Concomitant]
     Active Substance: PRAZOSIN
  14. ROXICET [Concomitant]
     Active Substance: ACETAMINOPHEN\OXYCODONE HYDROCHLORIDE
  15. OXYCODONE. [Concomitant]
     Active Substance: OXYCODONE HYDROCHLORIDE
  16. UNSPECIFIED PILL FOR TROUBLE REMEMBERING [Concomitant]
  17. QUETIAPINE. [Concomitant]
     Active Substance: QUETIAPINE

REACTIONS (2)
  - Gastric disorder [Unknown]
  - Vomiting [Unknown]

NARRATIVE: CASE EVENT DATE: 2019
